FAERS Safety Report 6928562-0 (Version None)
Quarter: 2010Q3

REPORT INFORMATION
  Report Type: 
  Country: None (occurrence: None)
  Receive Date: 20100817
  Receipt Date: 20100811
  Transmission Date: 20110219
  Serious: Yes (Congenital Anomaly)
  Sender: FDA-Public Use
  Company Number: US-BRISTOL-MYERS SQUIBB COMPANY-15024789

PATIENT
  Age: 3 Year

DRUGS (4)
  1. SUSTIVA [Suspect]
     Route: 064
  2. EPIVIR [Suspect]
     Route: 064
  3. ZIDOVUDINE [Suspect]
     Route: 064
  4. VIRACEPT [Suspect]
     Route: 064

REACTIONS (1)
  - ATRIAL SEPTAL DEFECT [None]
